FAERS Safety Report 6446270-X (Version None)
Quarter: 2009Q4

REPORT INFORMATION
  Report Type: 
  Country: None (occurrence: None)
  Receive Date: 20091119
  Receipt Date: 20091109
  Transmission Date: 20100525
  Serious: Yes (Other)
  Sender: FDA-Public Use
  Company Number: BG-ROCHE-667697

PATIENT
  Age: 5 Year
  Sex: Female

DRUGS (3)
  1. TAMIFLU [Suspect]
     Indication: H1N1 INFLUENZA
     Route: 048
     Dates: start: 20091105, end: 20091105
  2. PARACETAMOL [Concomitant]
     Indication: INFLUENZA
     Route: 048
     Dates: start: 20091102
  3. VITAMIN [Concomitant]

REACTIONS (4)
  - ABNORMAL BEHAVIOUR [None]
  - AGITATION [None]
  - CRYING [None]
  - SCREAMING [None]
